FAERS Safety Report 13219454 (Version 1)
Quarter: 2017Q1

REPORT INFORMATION
  Report Type: Spontaneous
  Country: US (occurrence: US)
  Receive Date: 20170210
  Receipt Date: 20170210
  Transmission Date: 20170428
  Serious: No
  Sender: FDA-Public Use
  Company Number: US-009507513-1702USA004363

PATIENT
  Age: 47 Year

DRUGS (2)
  1. ZEPATIER [Suspect]
     Active Substance: ELBASVIR\GRAZOPREVIR
     Indication: HEPATITIS C
     Dosage: 1 TABLET DAILY FOR 12 WEEKS; DOSAGE FORM: 50-100 MG
     Route: 048
     Dates: start: 201612, end: 20170206
  2. ZEPATIER [Suspect]
     Active Substance: ELBASVIR\GRAZOPREVIR
     Dosage: 1 TABLET DAILY FOR 12 WEEKS; DOSAGE FORM: 50-100 MG
     Route: 048
     Dates: start: 20170208

REACTIONS (4)
  - Dry skin [Unknown]
  - Insomnia [Unknown]
  - Nausea [Unknown]
  - Drug dose omission [Unknown]

NARRATIVE: CASE EVENT DATE: 20170207
